FAERS Safety Report 7876079-1 (Version None)
Quarter: 2011Q4

REPORT INFORMATION
  Report Type: 
  Country: None (occurrence: None)
  Receive Date: 20111031
  Receipt Date: 20111026
  Transmission Date: 20120403
  Serious: Yes (Hospitalization)
  Sender: FDA-Public Use
  Company Number: RU-ROCHE-1006986

PATIENT
  Age: 41 Year

DRUGS (3)
  1. MYCOPHENOLATE MOFETIL (CELLCEPT) [Suspect]
     Indication: RENAL TRANSPLANT
     Route: 048
     Dates: start: 20110325, end: 20110801
  2. MYCOPHENOLATE MOFETIL (CELLCEPT) [Suspect]
     Route: 048
     Dates: start: 20110801, end: 20110901
  3. MYCOPHENOLATE MOFETIL (CELLCEPT) [Suspect]
     Route: 048
     Dates: start: 20110901, end: 20110926

REACTIONS (8)
  - GASTROINTESTINAL DISORDER [None]
  - NAUSEA [None]
  - DYSPEPSIA [None]
  - ABDOMINAL PAIN UPPER [None]
  - VOMITING [None]
  - DIARRHOEA [None]
  - WEIGHT DECREASED [None]
  - HEPATOSPLENOMEGALY [None]
